FAERS Safety Report 11339796 (Version 1)
Quarter: 2015Q3

REPORT INFORMATION
  Report Type: Spontaneous
  Country: US (occurrence: None)
  Receive Date: 20150804
  Receipt Date: 20150804
  Transmission Date: 20151125
  Serious: Yes (Hospitalization, Disabling, Congenital Anomaly)
  Sender: FDA-Public Use
  Company Number: None

PATIENT
  Age: 1 Day
  Sex: Male

DRUGS (2)
  1. ZOFRAN [Suspect]
     Active Substance: ONDANSETRON HYDROCHLORIDE
     Indication: VOMITING IN PREGNANCY
     Dosage: 1 DISSOLVABLE TAVLET AS NEEDED TAKEN BY MOUTH
     Route: 048
     Dates: start: 20080720, end: 20090407
  2. PROGRAMMAVLE SHUNT [Concomitant]

REACTIONS (5)
  - Hydrocephalus [None]
  - Holoprosencephaly [None]
  - Brain malformation [None]
  - Congenital central nervous system anomaly [None]
  - Maternal drugs affecting foetus [None]

NARRATIVE: CASE EVENT DATE: 20090407
